FAERS Safety Report 15169101 (Version 2)
Quarter: 2018Q3

REPORT INFORMATION
  Report Type: Spontaneous
  Country: US (occurrence: US)
  Receive Date: 20180720
  Receipt Date: 20180921
  Transmission Date: 20181010
  Serious: No
  Sender: FDA-Public Use
  Company Number: US-IGSA-SR10006329

PATIENT
  Age: 59 Year
  Sex: Male

DRUGS (4)
  1. FLEBOGAMMA DIF [Suspect]
     Active Substance: HUMAN IMMUNOGLOBULIN G
     Dosage: UNK
     Dates: start: 20171109, end: 20171109
  2. FLEBOGAMMA DIF [Suspect]
     Active Substance: HUMAN IMMUNOGLOBULIN G
     Dosage: UNK
     Dates: start: 20171109, end: 20171109
  3. SOLU?CORTEF [Concomitant]
     Active Substance: HYDROCORTISONE SODIUM SUCCINATE
     Indication: ADVERSE DRUG REACTION
     Dosage: 100 MG, UNK
     Dates: start: 20171109
  4. FLEBOGAMMA DIF [Suspect]
     Active Substance: HUMAN IMMUNOGLOBULIN G
     Indication: PRODUCT USED FOR UNKNOWN INDICATION
     Dosage: 35 G, UNK
     Dates: start: 20171109, end: 20171109

REACTIONS (1)
  - Chills [Unknown]

NARRATIVE: CASE EVENT DATE: 20171109
